FAERS Safety Report 5280700-4 (Version None)
Quarter: 2007Q1

REPORT INFORMATION
  Report Type: 
  Country: None (occurrence: None)
  Receive Date: 20061221
  Receipt Date: 20060927
  Transmission Date: 20070707
  Serious: No
  Sender: FDA-Public Use
  Company Number: US-CVT-061970

PATIENT
  Age: 79 Year
  Sex: Male

DRUGS (15)
  1. RANEXA [Suspect]
     Indication: ANGINA PECTORIS
     Dosage: 500 MG, BID, ORAL
     Route: 048
     Dates: start: 20060901
  2. ASPIRIN [Concomitant]
  3. ATENOLOL [Concomitant]
  4. COREG [Concomitant]
  5. COUMADIN [Concomitant]
  6. DIGOXIN [Concomitant]
  7. IMDUR [Concomitant]
  8. LASIX [Concomitant]
  9. NITROSTAT [Concomitant]
  10. NOVOLOG [Concomitant]
  11. MAGNESIUM OXIDE (MAGNESIUM OXIDE) [Concomitant]
  12. PLAVIX [Concomitant]
  13. K-DUR (POTASSIUIM CHLORIDE) [Concomitant]
  14. PROTONIX [Concomitant]
  15. SYNTHROID [Concomitant]

REACTIONS (1)
  - BURSITIS [None]
